FAERS Safety Report 6919716-8 (Version None)
Quarter: 2010Q3

REPORT INFORMATION
  Report Type: 
  Country: None (occurrence: None)
  Receive Date: 20100811
  Receipt Date: 20100604
  Transmission Date: 20110219
  Serious: No
  Sender: FDA-Public Use
  Company Number: US-BRISTOL-MYERS SQUIBB COMPANY-15121718

PATIENT
  Age: 60 Year
  Sex: Female

DRUGS (1)
  1. IXEMPRA KIT [Suspect]
     Indication: UTERINE CANCER
     Dosage: ADMINISTERED VIA NON-DEHP FREE BAG; 3 HOURS
     Route: 042
     Dates: start: 20100311, end: 20100513

REACTIONS (1)
  - DRUG ADMINISTRATION ERROR [None]
